FAERS Safety Report 10155250 (Version 1)
Quarter: 2014Q2

REPORT INFORMATION
  Report Type: Spontaneous
  Country: US (occurrence: US)
  Receive Date: 20140506
  Receipt Date: 20140506
  Transmission Date: 20141212
  Serious: No
  Sender: FDA-Public Use
  Company Number: US-009507513-1405USA000344

PATIENT
  Sex: Female

DRUGS (1)
  1. REMERON [Suspect]
     Dosage: 15 MG, TWICE DAILY
     Route: 048
     Dates: start: 2000

REACTIONS (2)
  - Psychomotor hyperactivity [Unknown]
  - Dizziness [Unknown]
